FAERS Safety Report 7901433-9 (Version None)
Quarter: 2011Q4

REPORT INFORMATION
  Report Type: 
  Country: None (occurrence: None)
  Receive Date: 20111108
  Receipt Date: 20111028
  Transmission Date: 20120403
  Serious: No
  Sender: FDA-Public Use
  Company Number: FR-JNJFOC-20111101496

PATIENT
  Age: 56 Year
  Sex: Male

DRUGS (3)
  1. DURAGESIC-100 [Suspect]
     Indication: PRODUCT USED FOR UNKNOWN INDICATION
     Route: 062
     Dates: start: 20110805, end: 20111020
  2. DURAGESIC-100 [Suspect]
     Dosage: ONE PATCH AND A HALF OF 12.5 UG
     Route: 062
     Dates: start: 20111028
  3. DURAGESIC-100 [Suspect]
     Route: 062
     Dates: start: 20111020, end: 20111028

REACTIONS (3)
  - WRONG TECHNIQUE IN DRUG USAGE PROCESS [None]
  - DRUG PRESCRIBING ERROR [None]
  - BALANCE DISORDER [None]
